FAERS Safety Report 23980161 (Version 1)
Quarter: 2024Q2

REPORT INFORMATION
  Report Type: Other
  Country: TR (occurrence: TR)
  Receive Date: 20240617
  Receipt Date: 20240617
  Transmission Date: 20240716
  Serious: Yes (Other)
  Sender: FDA-Public Use
  Company Number: TR-Appco Pharma LLC-2158187

PATIENT
  Age: 9 Year
  Sex: Male

DRUGS (1)
  1. BACLOFEN [Suspect]
     Active Substance: BACLOFEN
     Indication: Stiff person syndrome
     Route: 065

REACTIONS (1)
  - Therapy non-responder [Unknown]
